FAERS Safety Report 7812850-X (Version None)
Quarter: 2011Q4

REPORT INFORMATION
  Report Type: 
  Country: None (occurrence: None)
  Receive Date: 20111011
  Receipt Date: 20111004
  Transmission Date: 20120403
  Serious: Yes (Death, Disabling)
  Sender: FDA-Public Use
  Company Number: 2011SP025468

PATIENT
  Age: 69 Year
  Sex: Male
  Weight: 69 kg

DRUGS (10)
  1. ADALAT [Concomitant]
  2. OMEPRAZOLE [Concomitant]
  3. CEROCRAL [Concomitant]
  4. DEPAKENE [Concomitant]
  5. LOXONIN (LOXOPROFEN SODIUM HYDRATE) [Concomitant]
  6. NAUSEA OD [Concomitant]
  7. TEMODAL [Suspect]
     Indication: OLIGODENDROGLIOMA
     Dosage: 75 MG/M2;QD;PO, 150 MG/M2;QD;PO, 200 MG/M2;QD;PO
     Route: 048
     Dates: start: 20070202, end: 20090919
  8. TEMODAL [Suspect]
     Indication: OLIGODENDROGLIOMA
     Dosage: 75 MG/M2;QD;PO, 150 MG/M2;QD;PO, 200 MG/M2;QD;PO
     Route: 048
     Dates: start: 20070105, end: 20070109
  9. TEMODAL [Suspect]
     Indication: OLIGODENDROGLIOMA
     Dosage: 75 MG/M2;QD;PO, 150 MG/M2;QD;PO, 200 MG/M2;QD;PO
     Route: 048
     Dates: start: 20061020, end: 20061128
  10. ZOFRAN (ONDANSETRON HYDROCHLORIDE HYDRATE) [Concomitant]

REACTIONS (3)
  - CARDIAC FAILURE [None]
  - CONGESTIVE CARDIOMYOPATHY [None]
  - CEREBRAL INFARCTION [None]
